APPROVED DRUG PRODUCT: CEFUROXIME SODIUM
Active Ingredient: CEFUROXIME SODIUM
Strength: EQ 750MG BASE/VIAL
Dosage Form/Route: INJECTABLE;INTRAMUSCULAR, INTRAVENOUS
Application: A064192 | Product #002
Applicant: TEVA PHARMACEUTICALS USA
Approved: Apr 16, 1998 | RLD: No | RS: No | Type: DISCN